FAERS Safety Report 17579832 (Version 1)
Quarter: 2020Q1

REPORT INFORMATION
  Report Type: Spontaneous
  Country: JP (occurrence: JP)
  Receive Date: 20200325
  Receipt Date: 20200325
  Transmission Date: 20200409
  Serious: Yes (Death)
  Sender: FDA-Public Use
  Company Number: JP-JNJFOC-20200326862

PATIENT
  Age: 70 Year
  Sex: Male

DRUGS (4)
  1. VELCADE [Suspect]
     Active Substance: BORTEZOMIB
     Indication: PLASMA CELL MYELOMA
     Dosage: UNKNOWN
     Route: 065
     Dates: start: 20200316, end: 20200316
  2. MELPHALAN. [Suspect]
     Active Substance: MELPHALAN
     Indication: PLASMA CELL MYELOMA
     Dosage: UNKNOWN
     Route: 065
     Dates: start: 20200316, end: 20200316
  3. PREDNISOLONE. [Suspect]
     Active Substance: PREDNISOLONE
     Indication: PLASMA CELL MYELOMA
     Dosage: UNKNOWN
     Route: 065
     Dates: start: 20200316, end: 20200316
  4. DARZALEX [Suspect]
     Active Substance: DARATUMUMAB
     Indication: PLASMA CELL MYELOMA
     Dosage: UNKNOWN
     Route: 065
     Dates: start: 20200316, end: 20200316

REACTIONS (2)
  - Dyspnoea [Fatal]
  - Pharyngeal oedema [Fatal]

NARRATIVE: CASE EVENT DATE: 20200316
